FAERS Safety Report 4634391-3 (Version None)
Quarter: 2005Q2

REPORT INFORMATION
  Report Type: 
  Country: None (occurrence: None)
  Receive Date: 20050412
  Receipt Date: 20050330
  Transmission Date: 20051028
  Serious: Yes (Other)
  Sender: FDA-Public Use
  Company Number: 2005026789

PATIENT
  Age: 52 Year
  Sex: Male
  Weight: 88.4514 kg

DRUGS (5)
  1. GABAPENTIN [Suspect]
     Indication: PAIN
     Dosage: 2400 MG (3 IN 1 D), ORAL
     Route: 048
     Dates: start: 20000101, end: 20040401
  2. NEFAZODONE HCL [Suspect]
     Indication: POST-TRAUMATIC STRESS DISORDER
     Dosage: ORAL
     Route: 048
  3. ESCITALOPRAM OXALATE [Suspect]
     Indication: ILL-DEFINED DISORDER
  4. CLONAZEPAM [Concomitant]
  5. ALL OTHER THERAPEUTIC PRODUCTS (ALL OTHER THERAPEUTIC PRODUCTS) [Concomitant]

REACTIONS (24)
  - ABNORMAL BEHAVIOUR [None]
  - ADVERSE EVENT [None]
  - ANXIETY [None]
  - BACK PAIN [None]
  - BALANCE DISORDER [None]
  - CHOKING [None]
  - COORDINATION ABNORMAL [None]
  - DRUG INEFFECTIVE [None]
  - DYSPHONIA [None]
  - DYSTONIA [None]
  - FEELING ABNORMAL [None]
  - GAIT DISTURBANCE [None]
  - HEADACHE [None]
  - MEMORY IMPAIRMENT [None]
  - NECK PAIN [None]
  - NUCLEAR MAGNETIC RESONANCE IMAGING BRAIN ABNORMAL [None]
  - OPISTHOTONUS [None]
  - PHARYNGOLARYNGEAL PAIN [None]
  - ROAD TRAFFIC ACCIDENT [None]
  - SOMNOLENCE [None]
  - SPEECH DISORDER [None]
  - THINKING ABNORMAL [None]
  - TREMOR [None]
  - VISION BLURRED [None]
